FAERS Safety Report 5851228-5 (Version None)
Quarter: 2008Q3

REPORT INFORMATION
  Report Type: 
  Country: None (occurrence: None)
  Receive Date: 20080820
  Receipt Date: 20080815
  Transmission Date: 20090109
  Serious: Yes (Death)
  Sender: FDA-Public Use
  Company Number: CN-WYE-H05602808

PATIENT
  Sex: Male
  Weight: 68 kg

DRUGS (1)
  1. TEMSIROLIMUS [Suspect]
     Indication: RENAL CELL CARCINOMA
     Route: 042
     Dates: start: 20080714, end: 20080813

REACTIONS (1)
  - RESPIRATORY TRACT INFECTION [None]
